FAERS Safety Report 9853239 (Version 2)
Quarter: 2014Q1

REPORT INFORMATION
  Report Type: Spontaneous
  Country: IN (occurrence: None)
  Receive Date: 20140127
  Receipt Date: 20140207
  Transmission Date: 20141002
  Serious: Yes (Hospitalization, Congenital Anomaly, Other)
  Sender: FDA-Public Use
  Company Number: AUR-APL-2014-00425

PATIENT
  Age: 18 Hour
  Sex: Female
  Weight: 3.8 kg

DRUGS (1)
  1. SEMISODIUM VALPROATE [Suspect]
     Indication: CONVULSION
     Dosage: 300MG, 1 D TRANSPLACENTAL
     Route: 064

REACTIONS (16)
  - Exposure during pregnancy [None]
  - Foetal anticonvulsant syndrome [None]
  - Neonatal respiratory distress syndrome [None]
  - Foetal exposure during pregnancy [None]
  - Anomaly of external ear congenital [None]
  - Nose deformity [None]
  - Microphthalmos [None]
  - Dysmorphism [None]
  - Neck deformity [None]
  - Congenital cutis laxa [None]
  - High arched palate [None]
  - Limb malformation [None]
  - Cardiomegaly [None]
  - Hepatomegaly [None]
  - Microstomia [None]
  - Atrial septal defect [None]
